FAERS Safety Report 10879541 (Version 2)
Quarter: 2015Q1

REPORT INFORMATION
  Report Type: Spontaneous
  Country: US (occurrence: US)
  Receive Date: 20150302
  Receipt Date: 20150303
  Transmission Date: 20150721
  Serious: Yes (Death)
  Sender: FDA-Public Use
  Company Number: PHHY2015US022944

PATIENT
  Age: 82 Year
  Sex: Female

DRUGS (3)
  1. KETOCONAZOLE. [Suspect]
     Active Substance: KETOCONAZOLE
     Indication: BLOOD CORTISOL INCREASED
     Dosage: 400 MG, TID
     Route: 065
  2. DEXAMETHASONE. [Concomitant]
     Active Substance: DEXAMETHASONE
     Indication: BLOOD CORTISOL INCREASED
     Dosage: 8 MG, OVER NIGHT
     Route: 065
  3. OCTREOTIDE, LONG ACTING [Suspect]
     Active Substance: OCTREOTIDE ACETATE
     Indication: BLOOD CORTISOL INCREASED
     Dosage: 40 MG, UNK
     Route: 030

REACTIONS (3)
  - Hypercorticoidism [Unknown]
  - Death [Fatal]
  - Drug ineffective [Unknown]
